FAERS Safety Report 11941325 (Version 1)
Quarter: 2016Q1

REPORT INFORMATION
  Report Type: Other
  Country: US (occurrence: US)
  Receive Date: 20160122
  Receipt Date: 20160122
  Transmission Date: 20160526
  Serious: Yes (Other)
  Sender: FDA-Public Use
  Company Number: US-GUTHY-RENKER LLC-1046816

PATIENT
  Age: 12 Year
  Sex: Female

DRUGS (3)
  1. PROACTIV SOLUTION RENEWING CLEANSER [Suspect]
     Active Substance: BENZOYL PEROXIDE
     Indication: ACNE
     Route: 061
     Dates: start: 20151225, end: 20151225
  2. PROACTIV SOLUTION OIL FREE MOISTURE SPF 15 MOISTURIZER [Suspect]
     Active Substance: OCTINOXATE\ZINC OXIDE
     Route: 061
     Dates: start: 20151225, end: 20151225
  3. PROACTIV REPAIRING TREATMENT [Suspect]
     Active Substance: BENZOYL PEROXIDE
     Route: 061
     Dates: start: 20151225, end: 20151225

REACTIONS (8)
  - Rash [None]
  - Application site swelling [None]
  - Application site erythema [None]
  - Application site rash [None]
  - Tongue disorder [None]
  - Cough [None]
  - Wrong technique in product usage process [None]
  - Anaphylactic reaction [Recovering/Resolving]
